FAERS Safety Report 16993844 (Version 1)
Quarter: 2019Q4

REPORT INFORMATION
  Report Type: Spontaneous
  Country: US (occurrence: US)
  Receive Date: 20191105
  Receipt Date: 20191105
  Transmission Date: 20200122
  Serious: Yes (Other)
  Sender: FDA-Public Use
  Company Number: US-BAYER-2019-193106

PATIENT
  Age: 41 Year
  Sex: Female

DRUGS (2)
  1. MIRENA [Suspect]
     Active Substance: LEVONORGESTREL
     Indication: CONTRACEPTION
     Dosage: 20 MCG/24HR, CONT
     Route: 015
     Dates: end: 20190911
  2. MIRENA [Suspect]
     Active Substance: LEVONORGESTREL
     Indication: CONTRACEPTION

REACTIONS (18)
  - Weight increased [None]
  - Fatigue [Recovering/Resolving]
  - Pain [Recovered/Resolved]
  - Eosinophilic oesophagitis [Recovering/Resolving]
  - Dizziness [Recovering/Resolving]
  - Pruritus [Recovered/Resolved]
  - Chronic fatigue syndrome [Recovering/Resolving]
  - Idiopathic intracranial hypertension [None]
  - Pelvic pain [Recovered/Resolved]
  - Headache [None]
  - Device allergy [None]
  - Malaise [Recovering/Resolving]
  - Nausea [Recovering/Resolving]
  - Visual impairment [None]
  - Urticaria [Recovering/Resolving]
  - Mechanical urticaria [Recovering/Resolving]
  - Depression [Recovering/Resolving]
  - Weight increased [None]

NARRATIVE: CASE EVENT DATE: 201702
